FAERS Safety Report 8022443-X (Version None)
Quarter: 2011Q4

REPORT INFORMATION
  Report Type: 
  Country: None (occurrence: None)
  Receive Date: 20111229
  Receipt Date: 20111222
  Transmission Date: 20120403
  Serious: Yes (Hospitalization)
  Sender: FDA-Public Use
  Company Number: AUR-APL-2011-06269

PATIENT
  Age: 17 Year
  Sex: Female
  Weight: 51.8 kg

DRUGS (2)
  1. SERTRALINE HYDROCHLORIDE [Suspect]
     Indication: DEPRESSION
     Dosage: (25 MG),ORAL
     Route: 048
     Dates: start: 20111110, end: 20111122
  2. FLUOXETINE HYDROCHLORIDE [Concomitant]

REACTIONS (4)
  - INTENTIONAL SELF-INJURY [None]
  - AGITATION [None]
  - SUICIDAL IDEATION [None]
  - SUICIDAL BEHAVIOUR [None]
